FAERS Safety Report 9591331 (Version 1)
Quarter: 2013Q4

REPORT INFORMATION
  Report Type: Spontaneous
  Country: US (occurrence: US)
  Receive Date: 20131003
  Receipt Date: 20131003
  Transmission Date: 20140711
  Serious: No
  Sender: FDA-Public Use
  Company Number: US-AMGEN-USASP2012080695

PATIENT
  Sex: Female
  Weight: 90.7 kg

DRUGS (3)
  1. ENBREL [Suspect]
     Indication: PRODUCT USED FOR UNKNOWN INDICATION
     Dosage: 50 MG, 2 TIMES/WK
     Route: 058
  2. VECTICAL [Concomitant]
     Dosage: 3 MUG, UNK
  3. CLARITIN-D [Concomitant]
     Dosage: 10-240 MG

REACTIONS (1)
  - Injection site haemorrhage [Unknown]
